FAERS Safety Report 8241797-2 (Version None)
Quarter: 2012Q1

REPORT INFORMATION
  Report Type: 
  Country: None (occurrence: None)
  Receive Date: 20120328
  Receipt Date: 20120323
  Transmission Date: 20120608
  Serious: Yes (Disabling, Other)
  Sender: FDA-Public Use
  Company Number: US-AMGEN-USASP2011045033

PATIENT
  Age: 84 Year
  Sex: Female

DRUGS (2)
  1. PROLIA [Suspect]
     Indication: OSTEOPOROSIS POSTMENOPAUSAL
     Dosage: 60 MG, UNK
     Dates: start: 20110601
  2. ANTIHYPERTENSIVES [Concomitant]
     Indication: HYPERTENSION
     Dosage: UNK

REACTIONS (13)
  - PAIN [None]
  - BACK PAIN [None]
  - QUALITY OF LIFE DECREASED [None]
  - PAIN IN EXTREMITY [None]
  - ACTIVITIES OF DAILY LIVING IMPAIRED [None]
  - ARTHRITIS [None]
  - MOBILITY DECREASED [None]
  - ADVERSE DRUG REACTION [None]
  - BONE PAIN [None]
  - MUSCULOSKELETAL STIFFNESS [None]
  - HAEMORRHAGE [None]
  - ARTHRALGIA [None]
  - MYALGIA [None]
